FAERS Safety Report 10082852 (Version 1)
Quarter: 2014Q2

REPORT INFORMATION
  Report Type: Spontaneous
  Country: PT (occurrence: PT)
  Receive Date: 20140416
  Receipt Date: 20140416
  Transmission Date: 20141212
  Serious: Yes (Other)
  Sender: FDA-Public Use
  Company Number: PHHY2014PT045639

PATIENT
  Age: 79 Year
  Sex: Female

DRUGS (2)
  1. DICLOFENAC [Suspect]
     Indication: OSTEOARTHRITIS
     Dosage: UNK
  2. DICLOFENAC [Suspect]
     Indication: OSTEOARTHRITIS

REACTIONS (9)
  - Gastrointestinal disorder [Unknown]
  - Large intestinal stenosis [Unknown]
  - Large intestinal ulcer [Unknown]
  - Haematochezia [Unknown]
  - Iron deficiency anaemia [Recovered/Resolved]
  - Hypochromic anaemia [Recovered/Resolved]
  - Microcytic anaemia [Recovered/Resolved]
  - Abdominal pain upper [Unknown]
  - Asthenia [Unknown]
